FAERS Safety Report 5763649-X (Version None)
Quarter: 2008Q2

REPORT INFORMATION
  Report Type: 
  Country: None (occurrence: None)
  Receive Date: 20080610
  Receipt Date: 20071226
  Transmission Date: 20081010
  Serious: No
  Sender: FDA-Public Use
  Company Number: US-BAYER-200810372NA

PATIENT
  Age: 26 Year
  Sex: Female

DRUGS (20)
  1. MIRENA [Suspect]
     Indication: DRUG USE FOR UNKNOWN INDICATION
     Route: 015
     Dates: start: 20071221, end: 20071221
  2. ACYCLOVIR SODIUM [Concomitant]
     Route: 048
  3. ALBUTEROL [Concomitant]
  4. ASCORBIC ACID [Concomitant]
  5. CA CARBONATE [Concomitant]
  6. CLONAZEPAM [Concomitant]
  7. PANCRECARB [Concomitant]
     Route: 048
  8. MAGNESIUM OXIDE [Concomitant]
  9. GARGINE [Concomitant]
     Route: 058
  10. LISPRO [Concomitant]
     Route: 058
  11. PANTOPRAZOLE [Concomitant]
  12. PREDNISONE TAB [Concomitant]
     Route: 048
  13. TACROLIMUS [Concomitant]
  14. URSODIOL [Concomitant]
  15. DARBEPOETIN [Concomitant]
  16. CALCITONIN NASAL SPRAY [Concomitant]
  17. TRAZODONE HCL [Concomitant]
     Route: 048
  18. VITAMIN B AND C [Concomitant]
     Route: 048
  19. PENTAMIDINE [Concomitant]
     Route: 055
  20. GABAPENTIN [Concomitant]
     Route: 048

REACTIONS (1)
  - PROCEDURAL PAIN [None]
